FAERS Safety Report 17241668 (Version 1)
Quarter: 2019Q4

REPORT INFORMATION
  Report Type: Spontaneous
  Country: US (occurrence: US)
  Receive Date: 20191211
  Receipt Date: 20191211
  Transmission Date: 20200122
  Serious: Yes (Hospitalization)
  Sender: FDA-Public Use
  Company Number: None

PATIENT
  Age: 16 Year
  Sex: Male
  Weight: 114 kg

DRUGS (6)
  1. ONCASPAR [Suspect]
     Active Substance: PEGASPARGASE
     Dates: end: 20191118
  2. DAUNORUBICIN [Suspect]
     Active Substance: DAUNORUBICIN
     Dates: end: 20191129
  3. CYTARABINE. [Suspect]
     Active Substance: CYTARABINE
     Dates: end: 20191115
  4. VINCRISTINE SULFATE. [Suspect]
     Active Substance: VINCRISTINE SULFATE
     Dates: end: 20191129
  5. PREDNISOLONE. [Suspect]
     Active Substance: PREDNISOLONE
     Dates: end: 20191130
  6. METHOTREXATE. [Suspect]
     Active Substance: METHOTREXATE
     Dates: end: 20191122

REACTIONS (14)
  - Malaise [None]
  - Irregular breathing [None]
  - Headache [None]
  - Prothrombin time prolonged [None]
  - Hypofibrinogenaemia [None]
  - Nausea [None]
  - Altered state of consciousness [None]
  - Hyperglycaemia [None]
  - Activated partial thromboplastin time prolonged [None]
  - Hypertension [None]
  - Fatigue [None]
  - Cerebral haemorrhage [None]
  - Superior sagittal sinus thrombosis [None]
  - Tonic clonic movements [None]

NARRATIVE: CASE EVENT DATE: 20191201
